FAERS Safety Report 6698983-2 (Version None)
Quarter: 2010Q2

REPORT INFORMATION
  Report Type: 
  Country: None (occurrence: None)
  Receive Date: 20100427
  Receipt Date: 20100421
  Transmission Date: 20101027
  Serious: Yes (Hospitalization)
  Sender: FDA-Public Use
  Company Number: D0062545A

PATIENT
  Age: 22 Year
  Sex: Female

DRUGS (3)
  1. ATMADISC [Suspect]
     Route: 055
  2. LEVOTHYROXINE SODIUM [Concomitant]
     Dosage: 75MCG IN THE MORNING
     Route: 065
  3. FOLIC ACID [Concomitant]
     Route: 065
     Dates: start: 20090905

REACTIONS (5)
  - CERVICOBRACHIAL SYNDROME [None]
  - DRUG EXPOSURE DURING PREGNANCY [None]
  - HEADACHE [None]
  - NAUSEA [None]
  - VOMITING [None]
